FAERS Safety Report 4351340-6 (Version None)
Quarter: 2004Q2

REPORT INFORMATION
  Report Type: 
  Country: None (occurrence: None)
  Receive Date: 20040428
  Receipt Date: 20040408
  Transmission Date: 20050107
  Serious: Yes (Other)
  Sender: FDA-Public Use
  Company Number: US_0404102184

PATIENT
  Age: 31 Year
  Sex: Male
  Weight: 66 kg

DRUGS (2)
  1. HUMALOG [Suspect]
     Dosage: 19 U/3 DAY
     Dates: start: 20010101
  2. LANTUS [Concomitant]

REACTIONS (2)
  - DIABETES MELLITUS INADEQUATE CONTROL [None]
  - MEDICAL DEVICE COMPLICATION [None]
